FAERS Safety Report 23610677 (Version 1)
Quarter: 2024Q1

REPORT INFORMATION
  Report Type: Spontaneous
  Country: HR (occurrence: HR)
  Receive Date: 20240308
  Receipt Date: 20240308
  Transmission Date: 20240410
  Serious: Yes (Hospitalization)
  Sender: FDA-Public Use
  Company Number: None

PATIENT
  Age: 36 Year
  Sex: Female
  Weight: 57 kg

DRUGS (3)
  1. MESALAMINE [Suspect]
     Active Substance: MESALAMINE
     Indication: Colitis ulcerative
     Route: 054
  2. Salofalk [Concomitant]
     Indication: Colitis ulcerative
     Route: 048
  3. CHORIOGONADOTROPIN ALFA [Suspect]
     Active Substance: CHORIOGONADOTROPIN ALFA
     Indication: Artificial insemination
     Dosage: STRENGTH OF MEDICINE?250 MICROGRAMS??DOSAGE?1 INJECTION ONCE A MONTH?ADR IS ADEQUATELY LABELED: N...
     Route: 058
     Dates: start: 20240221, end: 20240221

REACTIONS (6)
  - Vision blurred [Recovered/Resolved]
  - Vertigo [Recovered/Resolved]
  - Syncope [Recovered/Resolved]
  - Nausea [Recovered/Resolved]
  - Asthenia [Recovering/Resolving]
  - Cold sweat [Recovered/Resolved]

NARRATIVE: CASE EVENT DATE: 20240221
